FAERS Safety Report 6753815-9 (Version None)
Quarter: 2010Q2

REPORT INFORMATION
  Report Type: 
  Country: None (occurrence: None)
  Receive Date: 20100603
  Receipt Date: 20100601
  Transmission Date: 20101027
  Serious: Yes (Death, Life-Threatening, Hospitalization, Other)
  Sender: FDA-Public Use
  Company Number: JP-ELI_LILLY_AND_COMPANY-JP201003006550

PATIENT
  Age: 68 Year
  Sex: Female
  Weight: 53 kg

DRUGS (19)
  1. PEMETREXED [Suspect]
     Indication: BRONCHIOLOALVEOLAR CARCINOMA
     Dosage: 721 MG, OTHER
     Route: 042
     Dates: start: 20100312, end: 20100312
  2. CISPLATIN [Concomitant]
     Indication: BRONCHIOLOALVEOLAR CARCINOMA
     Dosage: 108 MG, OTHER
     Route: 042
     Dates: start: 20100312, end: 20100312
  3. PANVITAN [Concomitant]
     Dosage: 1 G, DAILY (1/D)
     Route: 048
     Dates: start: 20100305
  4. CYANOCOBALAMIN [Concomitant]
     Dosage: 1 MG, UNK
     Route: 030
     Dates: start: 20100305, end: 20100305
  5. MANNITOL [Concomitant]
     Route: 042
     Dates: start: 20100312, end: 20100312
  6. EMEND [Concomitant]
     Route: 048
     Dates: start: 20100312, end: 20100314
  7. GRANISETRON [Concomitant]
     Route: 042
     Dates: start: 20100312, end: 20100314
  8. SOLU-MEDROL [Concomitant]
     Route: 042
     Dates: start: 20100312, end: 20100314
  9. CONIEL [Concomitant]
     Indication: HYPERTENSION
     Route: 048
     Dates: end: 20100316
  10. CONIEL [Concomitant]
     Route: 048
     Dates: start: 20100323
  11. NOVOLIN R [Concomitant]
     Indication: DIABETES MELLITUS
     Route: 058
  12. MICARDIS [Concomitant]
     Indication: HYPERTENSION
     Route: 048
     Dates: end: 20100316
  13. GLYCYRON [Concomitant]
     Indication: HEPATIC STEATOSIS
     Dates: end: 20100328
  14. GLYCYRON [Concomitant]
     Route: 048
     Dates: end: 20100327
  15. ASTOMIN [Concomitant]
     Indication: BRONCHIOLOALVEOLAR CARCINOMA
     Route: 048
     Dates: start: 20100304
  16. MUCOSOLVAN [Concomitant]
     Indication: BRONCHIOLOALVEOLAR CARCINOMA
     Route: 048
     Dates: start: 20100304
  17. METEBANYL [Concomitant]
     Indication: BRONCHIOLOALVEOLAR CARCINOMA
     Dates: start: 20100309
  18. LOXOPROFEN [Concomitant]
     Route: 048
     Dates: start: 20100313, end: 20100314
  19. PURSENNID [Concomitant]
     Indication: CONSTIPATION
     Route: 048
     Dates: start: 20100315

REACTIONS (5)
  - ANAEMIA [None]
  - BONE MARROW FAILURE [None]
  - DEATH [None]
  - DISSEMINATED INTRAVASCULAR COAGULATION [None]
  - RENAL FAILURE ACUTE [None]
